FAERS Safety Report 9612426 (Version 2)
Quarter: 2013Q4

REPORT INFORMATION
  Report Type: Spontaneous
  Country: US (occurrence: US)
  Receive Date: 20131010
  Receipt Date: 20131107
  Transmission Date: 20140711
  Serious: No
  Sender: FDA-Public Use
  Company Number: US-009507513-1310USA000839

PATIENT
  Sex: Female

DRUGS (1)
  1. SAPHRIS [Suspect]
     Dosage: 5 MG, FREQUENCY UNKNOWN
     Route: 060

REACTIONS (2)
  - Adverse event [Recovered/Resolved]
  - Product quality issue [Unknown]
